FAERS Safety Report 6972405-6 (Version None)
Quarter: 2010Q3

REPORT INFORMATION
  Report Type: 
  Country: None (occurrence: None)
  Receive Date: 20100909
  Receipt Date: 20100903
  Transmission Date: 20110219
  Serious: Yes (Death)
  Sender: FDA-Public Use
  Company Number: TR-ELI_LILLY_AND_COMPANY-TR201009001116

PATIENT
  Age: 82 Year
  Sex: Female

DRUGS (2)
  1. HUMULIN 70/30 [Suspect]
     Dosage: UNK UNK, 2/D
     Route: 058
     Dates: start: 20100701, end: 20100809
  2. HUMULIN 70/30 [Suspect]
     Dosage: 12 U, EACH EVENING
     Dates: start: 20100701, end: 20100809

REACTIONS (1)
  - CARDIAC DISORDER [None]
